FAERS Safety Report 10570192 (Version 3)
Quarter: 2014Q4

REPORT INFORMATION
  Report Type: Spontaneous
  Country: IT (occurrence: IT)
  Receive Date: 20141107
  Receipt Date: 20141201
  Transmission Date: 20150529
  Serious: Yes (Other)
  Sender: FDA-Public Use
  Company Number: PHHY2014IT132468

PATIENT
  Age: 56 Year
  Sex: Male

DRUGS (1)
  1. GLIVEC [Suspect]
     Active Substance: IMATINIB MESYLATE
     Indication: CHRONIC MYELOID LEUKAEMIA
     Dosage: 400 MG, DAILY
     Route: 048
     Dates: start: 20050401

REACTIONS (3)
  - Diarrhoea [Unknown]
  - Hyperglycaemia [Recovered/Resolved]
  - Breast enlargement [Unknown]

NARRATIVE: CASE EVENT DATE: 201406
